FAERS Safety Report 10847129 (Version 1)
Quarter: 2015Q1

REPORT INFORMATION
  Report Type: Report from Study
  Country: FR (occurrence: FR)
  Receive Date: 20150220
  Receipt Date: 20150220
  Transmission Date: 20150721
  Serious: Yes (Death, Other)
  Sender: FDA-Public Use
  Company Number: PHHY2014FR065573

PATIENT
  Age: 41 Year
  Sex: Female

DRUGS (3)
  1. LDK378 [Suspect]
     Active Substance: CERITINIB
     Dosage: 750 MG, QD
     Route: 065
     Dates: start: 20141209
  2. LDK378 [Suspect]
     Active Substance: CERITINIB
     Indication: LUNG ADENOCARCINOMA METASTATIC
     Dosage: 600 MG, QD
     Route: 065
     Dates: start: 20140411
  3. LDK378 [Suspect]
     Active Substance: CERITINIB
     Indication: NON-SMALL CELL LUNG CANCER METASTATIC
     Dosage: 750 MG, QD
     Route: 065
     Dates: start: 20131031, end: 20131223

REACTIONS (5)
  - Bronchioloalveolar carcinoma [Fatal]
  - General physical health deterioration [Fatal]
  - Malignant neoplasm progression [Fatal]
  - Metastases to liver [Unknown]
  - Non-small cell lung cancer [Fatal]

NARRATIVE: CASE EVENT DATE: 20140317
